FAERS Safety Report 8516316-3 (Version None)
Quarter: 2012Q3

REPORT INFORMATION
  Report Type: 
  Country: None (occurrence: None)
  Receive Date: 20120718
  Receipt Date: 20120711
  Transmission Date: 20120928
  Serious: Yes (Other)
  Sender: FDA-Public Use
  Company Number: AR-AMGEN-ARGSP2012043861

PATIENT
  Age: 56 Year
  Sex: Female
  Weight: 80 kg

DRUGS (6)
  1. MODURETIC 5-50 [Concomitant]
     Dosage: UNK
  2. ENBREL [Suspect]
     Dosage: 50 MG, 2 TIMES/WK
  3. LEVOTHYROXINE SODIUM [Concomitant]
     Dosage: UNK
  4. CORBIS [Concomitant]
     Dosage: UNK
  5. ENBREL [Suspect]
     Indication: PSORIATIC ARTHROPATHY
     Dosage: 50 MG, WEEKLY
     Route: 058
     Dates: start: 20091007
  6. METFORMIN HYDROCHLORIDE [Concomitant]
     Dosage: UNK

REACTIONS (2)
  - PRURITUS [None]
  - PSORIATIC ARTHROPATHY [None]
